FAERS Safety Report 7982292-5 (Version None)
Quarter: 2011Q4

REPORT INFORMATION
  Report Type: 
  Country: None (occurrence: None)
  Receive Date: 20111214
  Receipt Date: 20111214
  Transmission Date: 20120403
  Serious: Yes (Other)
  Sender: FDA-Public Use
  Company Number: None

PATIENT
  Age: 46 Year
  Sex: Female
  Weight: 68.0396 kg

DRUGS (1)
  1. HYDROGEN PEROXIDE SOLUTION [Suspect]
     Indication: DENTAL CARE
     Dosage: 4 TIMES IN 2 HOURS, TOPICALLY
     Route: 061
     Dates: start: 20110306, end: 20110306

REACTIONS (3)
  - GINGIVAL PAIN [None]
  - THERMAL BURN [None]
  - PRODUCT QUALITY ISSUE [None]
